FAERS Safety Report 21301054 (Version 2)
Quarter: 2022Q3

REPORT INFORMATION
  Report Type: Spontaneous
  Country: US (occurrence: None)
  Receive Date: 20220907
  Receipt Date: 20220915
  Transmission Date: 20221027
  Serious: Yes (Other)
  Sender: FDA-Public Use
  Company Number: US-ROCHE-3173939

PATIENT
  Age: 67 Year
  Sex: Female

DRUGS (17)
  1. OCREVUS [Suspect]
     Active Substance: OCRELIZUMAB
     Indication: Secondary progressive multiple sclerosis
     Dosage: 1 DOSE INTO A VENOUS CATHETER EVERY 6 MONTHS
     Route: 042
     Dates: start: 201706
  2. ACETAMINOPHEN [Concomitant]
     Active Substance: ACETAMINOPHEN
     Dosage: TAKE 2 TABLETS BY MOUTH EVERY 8 HOURS AS NEEDED (DISCOMFORT/PAIN)
     Route: 048
  3. APIXABAN [Concomitant]
     Active Substance: APIXABAN
     Dosage: TAKE 5 MG BY MOUTH EVERY 12 HOURS. CURRENTLY ON 10MG TWICE DAILY, THEN TAPER TO 5MG?TWICE DAILY
     Route: 048
  4. BACLOFEN [Concomitant]
     Active Substance: BACLOFEN
     Dosage: TAKE 1 TABLET BY MOUTH EVERY 6 HOURS. (PATIENT TAKING DIFFERENTLY: TAKE 20 MG BY?MOUTH EVERY 8 HOURS
     Route: 048
  5. BIOTIN [Concomitant]
     Active Substance: BIOTIN
     Dosage: TAKE BY MOUTH.
     Route: 048
  6. BISACODYL [Concomitant]
     Active Substance: BISACODYL
     Dosage: INSERT 10 MG INTO THE RECTUM DAILY AS NEEDED
     Route: 054
  7. CALCIUM [Concomitant]
     Active Substance: CALCIUM
     Dosage: TAKE 1 TABLET BY MOUTH DAILY.
     Route: 048
  8. CHOLECALCIFEROL [Concomitant]
     Active Substance: CHOLECALCIFEROL
     Dosage: TAKE 1,000 UNITS BY MOUTH DAILY
     Route: 048
  9. DARIFENACIN HYDROBROMIDE [Concomitant]
     Active Substance: DARIFENACIN HYDROBROMIDE
     Dosage: 15 MG ORAL TABLET EXTENDED RELEASE 24 HOUR TAKE 1 TABLET BY MOUTH DAILY AT?BEDTIME
     Route: 048
  10. FUROSEMIDE [Concomitant]
     Active Substance: FUROSEMIDE
     Dosage: TAKE 1 TABLET BY MOUTH DAILY
     Route: 048
  11. GABAPENTIN [Concomitant]
     Active Substance: GABAPENTIN
     Dosage: TAKE 2 CAPSULES BY MOUTH EVERY 8 HOURS
     Route: 048
  12. LANSOPRAZOLE [Concomitant]
     Active Substance: LANSOPRAZOLE
     Dosage: TAKE 1 CAPSULE BY MOUTH DAILY BEFORE BREAKFAST
     Route: 048
  13. LETROZOLE [Concomitant]
     Active Substance: LETROZOLE
     Dosage: 2.5 MG TABLET TAKE 1 TABLET BY MOUTH DAILY
     Route: 048
  14. LORATADINE [Concomitant]
     Active Substance: LORATADINE
     Route: 048
  15. OXYBUTYNIN [Concomitant]
     Active Substance: OXYBUTYNIN
     Dosage: 5 MG TABLET TAKE 1 TABLET BY MOUTH EVERY 12 HOURS
     Route: 048
  16. PALBOCICLIB [Concomitant]
     Active Substance: PALBOCICLIB
     Dosage: TAKE 1 TABLET DAILY, ON DAYS 1-21 OF 28 DAY CYCLE
  17. SERTRALINE [Concomitant]
     Active Substance: SERTRALINE HYDROCHLORIDE
     Dosage: TAKE 50 MG BY MOUTH DAILY
     Route: 048

REACTIONS (1)
  - Breast cancer [Unknown]

NARRATIVE: CASE EVENT DATE: 20220516
